FAERS Safety Report 16058262 (Version 4)
Quarter: 2019Q2

REPORT INFORMATION
  Report Type: Spontaneous
  Country: US (occurrence: US)
  Receive Date: 20190311
  Receipt Date: 20190408
  Transmission Date: 20190711
  Serious: Yes (Life-Threatening, Hospitalization, Other)
  Sender: FDA-Public Use
  Company Number: US-GILEAD-2019-0395193

PATIENT
  Age: 68 Year
  Sex: Male

DRUGS (5)
  1. TYLENOL 8HR [Concomitant]
     Active Substance: ACETAMINOPHEN
  2. NEULASTA [Concomitant]
     Active Substance: PEGFILGRASTIM
     Indication: NEUTROPENIA
  3. ACYCLOVIR [ACICLOVIR] [Concomitant]
     Active Substance: ACYCLOVIR
     Indication: PROPHYLAXIS
  4. YESCARTA [Suspect]
     Active Substance: AXICABTAGENE CILOLEUCEL
     Indication: PRODUCT USED FOR UNKNOWN INDICATION
     Dosage: UNK
     Route: 042
     Dates: start: 20190113, end: 20190113
  5. POSACONAZOLE [Concomitant]
     Active Substance: POSACONAZOLE
     Indication: PROPHYLAXIS

REACTIONS (10)
  - Pneumonia [Unknown]
  - Pancytopenia [Recovered/Resolved]
  - Fungal abscess central nervous system [Not Recovered/Not Resolved]
  - Pharyngeal lesion [Unknown]
  - Noninfective encephalitis [Unknown]
  - Blindness unilateral [Not Recovered/Not Resolved]
  - Cytokine release syndrome [Recovered/Resolved]
  - Encephalopathy [Recovered/Resolved]
  - Neurotoxicity [Not Recovered/Not Resolved]
  - Pneumonia fungal [Unknown]

NARRATIVE: CASE EVENT DATE: 2019
